FAERS Safety Report 10407113 (Version 1)
Quarter: 2014Q3

REPORT INFORMATION
  Report Type: Spontaneous
  Country: US (occurrence: None)
  Receive Date: 20140822
  Receipt Date: 20140822
  Transmission Date: 20150326
  Serious: Yes (Other)
  Sender: FDA-Public Use
  Company Number: None

PATIENT
  Age: 49 Year
  Sex: Female
  Weight: 106.6 kg

DRUGS (1)
  1. AMLODIPINE [Suspect]
     Active Substance: AMLODIPINE BESYLATE
     Indication: HYPERTENSION
     Dosage: 1 PILL ONCE DAILY MOUTH
     Route: 048
     Dates: start: 20140601, end: 20140820

REACTIONS (2)
  - Muscle spasms [None]
  - Cough [None]

NARRATIVE: CASE EVENT DATE: 20140603
